FAERS Safety Report 7404567-0 (Version None)
Quarter: 2011Q2

REPORT INFORMATION
  Report Type: 
  Country: None (occurrence: None)
  Receive Date: 20110411
  Receipt Date: 20110401
  Transmission Date: 20111010
  Serious: Yes (Death, Hospitalization, Other)
  Sender: FDA-Public Use
  Company Number: US-BIOGENIDEC-2010BI010989

PATIENT
  Age: 72 Year
  Sex: Male
  Weight: 88 kg

DRUGS (25)
  1. VITAMIN D [Concomitant]
     Route: 048
  2. ZANAFLEX [Concomitant]
     Route: 048
  3. PHENERGAN HCL [Concomitant]
     Indication: NAUSEA
     Route: 048
  4. ALEVE [Concomitant]
     Route: 048
  5. MAGNESIUM GLUCONATE [Concomitant]
     Route: 048
  6. NABUMETONE [Concomitant]
     Route: 048
  7. TRAZODONE HCL [Concomitant]
     Route: 048
  8. HYDROCHLOROTHIAZIDE AND TRIAMTERENE [Concomitant]
  9. TYSABRI [Suspect]
     Indication: MULTIPLE SCLEROSIS
     Route: 042
     Dates: start: 20071009, end: 20090331
  10. METAMUCIL-2 [Concomitant]
  11. BACLOFEN [Concomitant]
     Route: 048
  12. MULTI-VITAMIN [Concomitant]
  13. OXYCODONE [Concomitant]
     Indication: PAIN
  14. TYSABRI [Suspect]
     Route: 042
     Dates: start: 20091022, end: 20100922
  15. DOCUSATE SODIUM [Concomitant]
     Route: 048
  16. ACETAMINOPHEN [Concomitant]
     Route: 048
  17. MILK OF MAGNESIA TAB [Concomitant]
     Route: 048
  18. LEXAPRO [Concomitant]
     Route: 048
  19. LISINOPRIL [Concomitant]
     Route: 048
  20. DULCOLAX [Concomitant]
  21. AMPYRA [Concomitant]
     Route: 048
  22. CALCIUM [Concomitant]
     Route: 048
  23. SIMVASTATIN [Concomitant]
     Route: 048
  24. METOPROLOL SUCCINATE [Concomitant]
     Route: 048
  25. FLOMAX [Concomitant]

REACTIONS (5)
  - POLLAKIURIA [None]
  - URINARY TRACT INFECTION [None]
  - GAIT DISTURBANCE [None]
  - METASTATIC CARCINOMA OF THE BLADDER [None]
  - PATHOLOGICAL FRACTURE [None]
